FAERS Safety Report 8165757-5 (Version None)
Quarter: 2012Q1

REPORT INFORMATION
  Report Type: 
  Country: None (occurrence: None)
  Receive Date: 20120227
  Receipt Date: 20110204
  Transmission Date: 20120608
  Serious: No
  Sender: FDA-Public Use
  Company Number: US-MYLANLABS-2011S1001240

PATIENT
  Age: 31 Year
  Sex: Male

DRUGS (2)
  1. AMNESTEEM [Suspect]
     Dates: start: 20100927, end: 20101101
  2. AMNESTEEM [Suspect]
     Indication: ACNE CYSTIC
     Dates: start: 20100927, end: 20101101

REACTIONS (1)
  - BLOOD CHOLESTEROL INCREASED [None]
